FAERS Safety Report 7987404-5 (Version None)
Quarter: 2011Q4

REPORT INFORMATION
  Report Type: 
  Country: None (occurrence: None)
  Receive Date: 20111216
  Receipt Date: 20110406
  Transmission Date: 20120403
  Serious: No
  Sender: FDA-Public Use
  Company Number: US-BRISTOL-MYERS SQUIBB COMPANY-15656796

PATIENT
  Age: 60 Year
  Sex: Female

DRUGS (2)
  1. ABILIFY [Suspect]
     Indication: DEPRESSION
  2. ZOLOFT [Suspect]

REACTIONS (5)
  - ARTHRALGIA [None]
  - CONSTIPATION [None]
  - WEIGHT INCREASED [None]
  - ASTHENIA [None]
  - FLUID RETENTION [None]
